FAERS Safety Report 19883769 (Version 4)
Quarter: 2021Q4

REPORT INFORMATION
  Report Type: Spontaneous
  Country: US (occurrence: US)
  Receive Date: 20210927
  Receipt Date: 20211006
  Transmission Date: 20220303
  Serious: No
  Sender: FDA-Public Use
  Company Number: US-ORGANON-O2109USA001737

PATIENT
  Age: 42 Year
  Sex: Female
  Weight: 73.02 kg

DRUGS (1)
  1. NEXPLANON [Suspect]
     Active Substance: ETONOGESTREL
     Dosage: 1 ROD IN LEFT ARM
     Dates: start: 20210920, end: 20210920

REACTIONS (4)
  - Complication of device insertion [Unknown]
  - Product quality issue [Unknown]
  - No adverse event [Unknown]
  - Wrong technique in device usage process [Unknown]

NARRATIVE: CASE EVENT DATE: 20210920
